FAERS Safety Report 21336323 (Version 1)
Quarter: 2022Q3

REPORT INFORMATION
  Report Type: Spontaneous
  Country: US (occurrence: US)
  Receive Date: 20220915
  Receipt Date: 20220915
  Transmission Date: 20221027
  Serious: Yes (Other)
  Sender: FDA-Public Use
  Company Number: US-BRISTOL-MYERS SQUIBB COMPANY-2022-105228

PATIENT
  Age: 67 Year
  Sex: Female

DRUGS (13)
  1. ELIQUIS [Suspect]
     Active Substance: APIXABAN
     Indication: Protein total decreased
     Route: 048
     Dates: start: 2022
  2. MONTELUKAST [Concomitant]
     Active Substance: MONTELUKAST SODIUM
     Indication: Hypersensitivity
     Route: 065
  3. LEVOTHYROXINE [Concomitant]
     Active Substance: LEVOTHYROXINE
     Indication: Thyroid disorder
     Route: 065
  4. TRAZODONE [Concomitant]
     Active Substance: TRAZODONE HYDROCHLORIDE
     Indication: Sleep disorder
     Route: 065
  5. NEXIUM I.V. [Concomitant]
     Active Substance: ESOMEPRAZOLE SODIUM
     Indication: Gastrooesophageal reflux disease
     Route: 065
  6. ATORVASTATIN [Concomitant]
     Active Substance: ATORVASTATIN
     Indication: Blood cholesterol
     Route: 065
  7. AMLODIPINE [Concomitant]
     Active Substance: AMLODIPINE BESYLATE
     Indication: Blood pressure measurement
     Route: 065
  8. VITAMINS [Concomitant]
     Active Substance: VITAMINS
     Indication: Product used for unknown indication
     Route: 065
  9. FAMOTIDINE [Concomitant]
     Active Substance: FAMOTIDINE
     Indication: Gastrooesophageal reflux disease
     Route: 065
  10. LEVOCETIRIZINE DIHYDROCHLORIDE [Concomitant]
     Active Substance: LEVOCETIRIZINE DIHYDROCHLORIDE
     Indication: Hypersensitivity
     Route: 065
  11. ZOLPIDEM [Concomitant]
     Active Substance: ZOLPIDEM TARTRATE
     Indication: Sleep disorder
     Route: 065
  12. LEVOCETIRIZINE [Concomitant]
     Active Substance: LEVOCETIRIZINE
     Indication: Hypersensitivity
     Route: 065
  13. DULERA [Concomitant]
     Active Substance: FORMOTEROL FUMARATE DIHYDRATE\MOMETASONE FUROATE
     Indication: Asthma
     Dosage: TWO PUFFS

REACTIONS (5)
  - Haemorrhage [Unknown]
  - Rash macular [Unknown]
  - Flushing [Unknown]
  - Contusion [Unknown]
  - Intentional product use issue [Unknown]

NARRATIVE: CASE EVENT DATE: 20220101
